FAERS Safety Report 10863535 (Version 1)
Quarter: 2015Q1

REPORT INFORMATION
  Report Type: Spontaneous
  Country: US (occurrence: US)
  Receive Date: 20150224
  Receipt Date: 20150224
  Transmission Date: 20150721
  Serious: No
  Sender: FDA-Public Use
  Company Number: US-GILEAD-2015-0137962

PATIENT
  Age: 47 Year
  Sex: Male

DRUGS (4)
  1. INDOMETHACIN                       /00003801/ [Concomitant]
     Active Substance: INDOMETHACIN
  2. BUPROPION [Concomitant]
     Active Substance: BUPROPION
  3. HARVONI [Suspect]
     Active Substance: LEDIPASVIR\SOFOSBUVIR
     Indication: HEPATITIS C
     Dosage: UNK
     Route: 065
     Dates: start: 2014
  4. LEVOTHYROXINE [Concomitant]
     Active Substance: LEVOTHYROXINE

REACTIONS (1)
  - Blood creatinine increased [Unknown]
